FAERS Safety Report 8218412-7 (Version None)
Quarter: 2012Q1

REPORT INFORMATION
  Report Type: 
  Country: None (occurrence: None)
  Receive Date: 20120319
  Receipt Date: 20120315
  Transmission Date: 20120608
  Serious: Yes (Other)
  Sender: FDA-Public Use
  Company Number: US-AMGEN-USASP2012016984

PATIENT
  Sex: Male
  Weight: 97.1 kg

DRUGS (9)
  1. LANTUS [Concomitant]
     Indication: DIABETES MELLITUS
  2. SIMVASTATIN [Concomitant]
  3. PRAVASTATIN [Concomitant]
  4. DIGOXIN [Concomitant]
  5. TRAMADOL HCL [Concomitant]
  6. CARVEDILOL [Concomitant]
  7. NPLATE [Suspect]
     Indication: IDIOPATHIC THROMBOCYTOPENIC PURPURA
     Dosage: 200 UNK, QWK
     Dates: start: 20090101
  8. HUMALOG [Concomitant]
     Indication: DIABETES MELLITUS
  9. MULTIVITAMIN                       /00097801/ [Concomitant]

REACTIONS (3)
  - DIZZINESS [None]
  - HEADACHE [None]
  - PLATELET COUNT DECREASED [None]
